FAERS Safety Report 4469538-5 (Version None)
Quarter: 2004Q4

REPORT INFORMATION
  Report Type: 
  Country: None (occurrence: None)
  Receive Date: 20041005
  Receipt Date: 20040920
  Transmission Date: 20050328
  Serious: Yes (Hospitalization)
  Sender: FDA-Public Use
  Company Number: 199677

PATIENT
  Age: 48 Year
  Sex: Female
  Weight: 108.8633 kg

DRUGS (21)
  1. AVONEX [Suspect]
     Indication: MULTIPLE SCLEROSIS
     Dosage: 30 MCG QW IM
     Route: 030
     Dates: start: 19990101, end: 20030801
  2. AVONEX [Suspect]
     Indication: MULTIPLE SCLEROSIS
     Dosage: 30 MCG QW IM
     Route: 030
     Dates: start: 20030801
  3. NEURONTIN [Concomitant]
  4. XANAX [Concomitant]
  5. EFFEXOR [Concomitant]
  6. MECLIZINE [Concomitant]
  7. FIORINAL [Concomitant]
  8. NADOLOL [Concomitant]
  9. GEMFIBROZIL [Concomitant]
  10. GLUCOPHAGE ^UNS^ [Concomitant]
  11. GLIPIZIDE [Concomitant]
  12. ACTOS /USA/ [Concomitant]
  13. NEXIUM [Concomitant]
  14. ALPRAZOLAM [Concomitant]
  15. AMBIEN [Concomitant]
  16. ACYCLOVIR [Concomitant]
  17. TRIAMCINOLONE [Concomitant]
  18. CLINDAMYCIN HCL [Concomitant]
  19. THYMOL [Concomitant]
  20. ASPIRIN [Concomitant]
  21. TYLENOL [Concomitant]

REACTIONS (17)
  - ABDOMINAL PAIN [None]
  - BACK PAIN [None]
  - CONDITION AGGRAVATED [None]
  - FALL [None]
  - FLUID IMBALANCE [None]
  - GAIT DISTURBANCE [None]
  - HYPOAESTHESIA [None]
  - MENORRHAGIA [None]
  - MULTIPLE SCLEROSIS [None]
  - NEOPLASM [None]
  - OBSESSIVE-COMPULSIVE DISORDER [None]
  - PARAESTHESIA [None]
  - PERSONALITY DISORDER [None]
  - RIB FRACTURE [None]
  - SMEAR CERVIX ABNORMAL [None]
  - SPEECH DISORDER [None]
  - STRESS SYMPTOMS [None]
